FAERS Safety Report 8008868-7 (Version None)
Quarter: 2011Q4

REPORT INFORMATION
  Report Type: 
  Country: None (occurrence: None)
  Receive Date: 20111227
  Receipt Date: 20111219
  Transmission Date: 20120403
  Serious: No
  Sender: FDA-Public Use
  Company Number: US-B.I. PHARMACEUTICALS,INC./RIDGEFIELD-2011-BP-28446BP

PATIENT
  Sex: Female

DRUGS (6)
  1. ACETAMINOPHEN [Concomitant]
     Indication: ARTHRITIS
     Dosage: 650 MG
     Route: 048
     Dates: start: 20060101
  2. VITAMIN D [Concomitant]
     Indication: ROUTINE HEALTH MAINTENANCE
     Route: 048
     Dates: start: 20090101
  3. ZANTAC 75 [Suspect]
     Indication: GASTROOESOPHAGEAL REFLUX DISEASE
     Dosage: 150 MG
     Route: 048
     Dates: start: 20111218
  4. PLAVIX [Concomitant]
     Indication: CEREBROVASCULAR ACCIDENT PROPHYLAXIS
     Dosage: 75 MG
     Route: 048
     Dates: start: 20060101
  5. AMLODIPINE [Concomitant]
     Indication: HYPERTENSION
     Dosage: 10 MG
     Route: 048
     Dates: start: 20060101
  6. VITAMIN B6 [Concomitant]
     Indication: ROUTINE HEALTH MAINTENANCE
     Route: 048
     Dates: start: 20090101

REACTIONS (2)
  - SENSATION OF FOREIGN BODY [None]
  - OROPHARYNGEAL PAIN [None]
